FAERS Safety Report 24114452 (Version 2)
Quarter: 2024Q3

REPORT INFORMATION
  Report Type: Spontaneous
  Country: US (occurrence: US)
  Receive Date: 20240720
  Receipt Date: 20240724
  Transmission Date: 20241017
  Serious: Yes (Other)
  Sender: RANBAXY
  Company Number: US-SUN PHARMACEUTICAL INDUSTRIES LTD-2024R1-457750

PATIENT
  Age: 71 Year
  Sex: Male

DRUGS (6)
  1. INDOMETHACIN [Suspect]
     Active Substance: INDOMETHACIN
     Indication: VEXAS syndrome
     Dosage: UNK
     Route: 065
  2. PREDNISONE [Suspect]
     Active Substance: PREDNISONE
     Indication: VEXAS syndrome
     Dosage: UNK
     Route: 048
  3. MYCOPHENOLIC ACID [Suspect]
     Active Substance: MYCOPHENOLIC ACID
     Indication: VEXAS syndrome
     Dosage: UNK
     Route: 065
  4. ADALIMUMAB [Suspect]
     Active Substance: ADALIMUMAB\ISOPROPYL ALCOHOL
     Indication: VEXAS syndrome
     Dosage: UNK
     Route: 065
  5. COLCHICINE [Suspect]
     Active Substance: COLCHICINE
     Indication: VEXAS syndrome
     Dosage: UNK
     Route: 065
  6. DAPSONE [Suspect]
     Active Substance: DAPSONE
     Indication: VEXAS syndrome
     Dosage: UNK
     Route: 065

REACTIONS (2)
  - Disease progression [Unknown]
  - Drug ineffective [Unknown]
